FAERS Safety Report 20069470 (Version 1)
Quarter: 2021Q4

REPORT INFORMATION
  Report Type: Spontaneous
  Country: US (occurrence: None)
  Receive Date: 20211114
  Receipt Date: 20211114
  Transmission Date: 20220304
  Serious: No
  Sender: FDA-Public Use
  Company Number: None

PATIENT
  Age: 34 Year
  Sex: Female
  Weight: 81.45 kg

DRUGS (1)
  1. BAMLANIVIMAB [Suspect]
     Active Substance: BAMLANIVIMAB
     Dates: start: 20211102, end: 20211102

REACTIONS (3)
  - Hypoaesthesia [None]
  - Flushing [None]
  - Burning sensation [None]

NARRATIVE: CASE EVENT DATE: 20211102
